FAERS Safety Report 7062208-9 (Version None)
Quarter: 2010Q4

REPORT INFORMATION
  Report Type: 
  Country: None (occurrence: None)
  Receive Date: 20101026
  Receipt Date: 20070913
  Transmission Date: 20110411
  Serious: Yes (Hospitalization, Other)
  Sender: FDA-Public Use
  Company Number: US-AMGEN-KDL233318

PATIENT

DRUGS (13)
  1. ENBREL [Suspect]
     Indication: PSORIATIC ARTHROPATHY
     Dosage: 50 MG, 2 TIMES/WK
     Route: 058
     Dates: start: 20060501
  2. ENBREL [Suspect]
     Indication: PSORIASIS
  3. AMITRIPTYLINE HCL [Concomitant]
     Dosage: UNK UNK, UNK
     Dates: start: 20050101
  4. CELECOXIB [Concomitant]
     Dosage: UNK UNK, UNK
     Dates: start: 20050701
  5. CLONAZEPAM [Concomitant]
     Dosage: UNK UNK, UNK
     Dates: start: 20050101
  6. HYDROCHLOROTHIAZIDE [Concomitant]
     Dosage: UNK UNK, UNK
     Dates: start: 19820101
  7. LISINOPRIL [Concomitant]
     Dosage: UNK UNK, UNK
     Dates: start: 20060501
  8. GLUCOSAMINE W/CHONDROITIN SULFATES [Concomitant]
     Dosage: UNK UNK, UNK
     Dates: start: 20070101
  9. POTASSIUM CHLORIDE [Concomitant]
     Dosage: UNK UNK, UNK
     Dates: start: 20050701
  10. ACETAMINOPHEN [Concomitant]
     Dosage: UNK UNK, UNK
     Dates: start: 20070501
  11. VERAPAMIL [Concomitant]
     Dosage: UNK UNK, UNK
     Dates: start: 20060501
  12. EZETIMIBE [Concomitant]
     Dosage: UNK UNK, UNK
     Dates: start: 20040501
  13. ATENOLOL [Concomitant]
     Dosage: UNK UNK, UNK
     Dates: start: 19820101, end: 20060501

REACTIONS (10)
  - BACK PAIN [None]
  - BREAST CANCER IN SITU [None]
  - CORONARY ARTERIAL STENT INSERTION [None]
  - FUNGAL SKIN INFECTION [None]
  - GRIP STRENGTH DECREASED [None]
  - MUSCLE SPASMS [None]
  - PAIN IN JAW [None]
  - PALPITATIONS [None]
  - PSORIASIS [None]
  - PSORIATIC ARTHROPATHY [None]
